FAERS Safety Report 10860624 (Version 1)
Quarter: 2015Q1

REPORT INFORMATION
  Report Type: Report from Study
  Country: BR (occurrence: BR)
  Receive Date: 20150224
  Receipt Date: 20150224
  Transmission Date: 20150721
  Serious: Yes (Death, Hospitalization)
  Sender: FDA-Public Use
  Company Number: BR-ROCHE-1542299

PATIENT
  Age: 42 Year
  Sex: Female
  Weight: 80 kg

DRUGS (1)
  1. MABTHERA [Suspect]
     Active Substance: RITUXIMAB
     Indication: RHEUMATOID ARTHRITIS
     Route: 042
     Dates: start: 20140925, end: 20141009

REACTIONS (5)
  - Dyspnoea [Unknown]
  - Respiratory arrest [Unknown]
  - Acute respiratory failure [Fatal]
  - Septic shock [Fatal]
  - Pneumonia [Fatal]

NARRATIVE: CASE EVENT DATE: 20141212
